FAERS Safety Report 9547029 (Version 1)
Quarter: 2013Q2

REPORT INFORMATION
  Report Type: Spontaneous
  Country: US (occurrence: None)
  Receive Date: 20130606
  Receipt Date: 20130606
  Transmission Date: 20140414
  Serious: Yes (Hospitalization)
  Sender: FDA-Public Use
  Company Number: 163-POMAL-13044472

PATIENT
  Sex: Male
  Weight: 70.76 kg

DRUGS (1)
  1. POMALYST [Suspect]
     Indication: PLASMA CELL MYELOMA
     Dosage: 4 MG, 21 IN 21 D, PO
     Route: 048
     Dates: start: 20130227, end: 20130425

REACTIONS (4)
  - Urinary retention [None]
  - Back pain [None]
  - White blood cell count decreased [None]
  - Platelet count decreased [None]
